FAERS Safety Report 4835690-2 (Version None)
Quarter: 2005Q4

REPORT INFORMATION
  Report Type: 
  Country: None (occurrence: None)
  Receive Date: 20051123
  Receipt Date: 20050811
  Transmission Date: 20060501
  Serious: No
  Sender: FDA-Public Use
  Company Number: US-BRISTOL-MYERS SQUIBB COMPANY-13080023

PATIENT
  Age: 23 Year
  Sex: Female
  Weight: 82 kg

DRUGS (4)
  1. ANATENSOL [Suspect]
  2. PROZAC [Concomitant]
  3. KLONOPIN [Concomitant]
  4. PROLIXIN [Concomitant]

REACTIONS (1)
  - DEPRESSION [None]
